FAERS Safety Report 6814881-5 (Version None)
Quarter: 2010Q3

REPORT INFORMATION
  Report Type: 
  Country: None (occurrence: None)
  Receive Date: 20100702
  Receipt Date: 20100623
  Transmission Date: 20110219
  Serious: Yes (Hospitalization)
  Sender: FDA-Public Use
  Company Number: US-ASTRAZENECA-2009UW05606

PATIENT
  Age: 63 Year
  Sex: Female
  Weight: 68.9 kg

DRUGS (13)
  1. ARIMIDEX [Suspect]
     Indication: BREAST CANCER
     Route: 048
     Dates: start: 20090301
  2. SYNTHROID [Concomitant]
     Indication: HYPOTHYROIDISM
     Route: 048
  3. GLUCOPHAGE [Concomitant]
     Indication: DIABETES MELLITUS
     Route: 048
  4. HYZAAR [Concomitant]
     Indication: HYPERTENSION
     Route: 048
  5. ASPIRIN [Concomitant]
     Indication: CARDIAC DISORDER
     Route: 048
  6. LOVAZA [Concomitant]
     Indication: BLOOD TRIGLYCERIDES INCREASED
  7. CALCIUM CARBONATE [Concomitant]
     Indication: SUPPLEMENTATION THERAPY
  8. CALCIUM CARBONATE [Concomitant]
     Indication: BONE DISORDER
  9. MAGNESIUM [Concomitant]
     Indication: BONE DISORDER
     Dosage: DAILY
     Route: 048
  10. FISH OIL [Concomitant]
     Indication: CARDIAC DISORDER
     Dosage: DAILY
     Route: 048
  11. COQ10 [Concomitant]
     Indication: CARDIAC DISORDER
     Dosage: DAILY
     Route: 048
  12. VITAMIN C [Concomitant]
     Dosage: DAILY
     Route: 048
  13. GLUCOSAMINE [Concomitant]
     Indication: ARTHRITIS
     Dosage: DAILY
     Route: 048

REACTIONS (19)
  - AMNESIA [None]
  - BLOOD CHOLESTEROL INCREASED [None]
  - BONE PAIN [None]
  - DECREASED APPETITE [None]
  - DIZZINESS [None]
  - DYSARTHRIA [None]
  - DYSGEUSIA [None]
  - FATIGUE [None]
  - HEADACHE [None]
  - HOT FLUSH [None]
  - MENISCUS LESION [None]
  - MUCOSAL DRYNESS [None]
  - NAUSEA [None]
  - NERVOUSNESS [None]
  - OEDEMA PERIPHERAL [None]
  - PAIN IN EXTREMITY [None]
  - PARAESTHESIA [None]
  - PERIPHERAL COLDNESS [None]
  - THYROID FUNCTION TEST NORMAL [None]
